FAERS Safety Report 20363868 (Version 1)
Quarter: 2022Q1

REPORT INFORMATION
  Report Type: Other
  Country: CA (occurrence: None)
  Receive Date: 20220121
  Receipt Date: 20220121
  Transmission Date: 20220423
  Serious: Yes (Other)
  Sender: FDA-Public Use
  Company Number: CA-ROCHE-2987765

PATIENT
  Age: 30 Year
  Sex: Female

DRUGS (18)
  1. RITUXAN [Suspect]
     Active Substance: RITUXIMAB
     Indication: Systemic lupus erythematosus
     Dosage: DRUG DOSE FIRST ADMINISTERED IS 1000 MG MILLIGRAM(S)
     Route: 042
     Dates: start: 20170608, end: 20201203
  2. RITUXAN [Suspect]
     Active Substance: RITUXIMAB
     Route: 042
  3. CELLCEPT [Suspect]
     Active Substance: MYCOPHENOLATE MOFETIL
     Indication: Systemic lupus erythematosus
     Dosage: MOREDOSAGEINFO IS DAILY DOSE
     Route: 048
  4. CIALIS [Concomitant]
     Active Substance: TADALAFIL
     Route: 065
  5. DOMPERIDONE [Concomitant]
     Active Substance: DOMPERIDONE
     Route: 065
  6. GINGER [Concomitant]
     Active Substance: GINGER
  7. HYDROXYCHLOROQUINE [Concomitant]
     Active Substance: HYDROXYCHLOROQUINE
     Route: 065
  8. MIRENA [Concomitant]
     Active Substance: LEVONORGESTREL
     Route: 065
  9. NEXIUM [Concomitant]
     Active Substance: ESOMEPRAZOLE MAGNESIUM
     Route: 065
  10. NUVARING [Concomitant]
     Active Substance: ETHINYL ESTRADIOL\ETONOGESTREL
     Route: 065
  11. NYSTATIN [Concomitant]
     Active Substance: NYSTATIN
     Route: 048
  12. HYDROCORTISONE [Concomitant]
     Active Substance: HYDROCORTISONE
     Route: 048
  13. BENADRYL [Concomitant]
     Active Substance: DIPHENHYDRAMINE HYDROCHLORIDE
     Route: 048
  14. PLAQUENIL [Concomitant]
     Active Substance: HYDROXYCHLOROQUINE SULFATE
     Route: 065
  15. PREDNISONE [Concomitant]
     Active Substance: PREDNISONE
     Route: 065
  16. RITUXIMAB [Concomitant]
     Active Substance: RITUXIMAB
     Route: 065
  17. RUXIENCE [Concomitant]
     Active Substance: RITUXIMAB-PVVR
     Dosage: DRUG DOSE FIRST ADMINISTERED IS UNKNOWN MOREDOSAGEINFO IS DOSING DETAILS NOT PROVIDED
     Route: 065
  18. ZOFRAN [Concomitant]
     Active Substance: ONDANSETRON HYDROCHLORIDE
     Route: 065

REACTIONS (1)
  - Pancreatitis [Recovered/Resolved]

NARRATIVE: CASE EVENT DATE: 20220113
